FAERS Safety Report 5684598-1 (Version None)
Quarter: 2008Q1

REPORT INFORMATION
  Report Type: 
  Country: None (occurrence: None)
  Receive Date: 20080328
  Receipt Date: 20070328
  Transmission Date: 20080703
  Serious: No
  Sender: FDA-Public Use
  Company Number: US-BRISTOL-MYERS SQUIBB COMPANY-13729413

PATIENT
  Sex: Male
  Weight: 59 kg

DRUGS (4)
  1. ERBITUX [Suspect]
     Route: 042
  2. OXALIPLATIN [Concomitant]
  3. LEUCOVORIN CALCIUM [Concomitant]
  4. FLUOROURACIL [Concomitant]

REACTIONS (1)
  - CONJUNCTIVITIS [None]
